FAERS Safety Report 5073521-9 (Version None)
Quarter: 2006Q3

REPORT INFORMATION
  Report Type: 
  Country: None (occurrence: None)
  Receive Date: 20060803
  Receipt Date: 20060721
  Transmission Date: 20061208
  Serious: Yes (Hospitalization, Disabling, Other)
  Sender: FDA-Public Use
  Company Number: 2006091002

PATIENT
  Age: 37 Year
  Sex: Male

DRUGS (2)
  1. CYTOTEC [Suspect]
     Indication: DYSPEPSIA
     Dosage: 20 MG (20 MG, 1 IN 1 D), ORAL
     Route: 048
     Dates: start: 19910101
  2. ANAESTHETICS (ANAESTHETICS) [Suspect]
     Indication: SURGERY
     Dates: start: 20020301

REACTIONS (9)
  - ANXIETY [None]
  - CARDIAC ARREST [None]
  - CARPAL TUNNEL SYNDROME [None]
  - IMPAIRED WORK ABILITY [None]
  - MONOPLEGIA [None]
  - POST PROCEDURAL NAUSEA [None]
  - PROCEDURAL COMPLICATION [None]
  - ROAD TRAFFIC ACCIDENT [None]
  - WRIST FRACTURE [None]
